FAERS Safety Report 6573964-8 (Version None)
Quarter: 2010Q1

REPORT INFORMATION
  Report Type: 
  Country: None (occurrence: None)
  Receive Date: 20100208
  Receipt Date: 20100129
  Transmission Date: 20100710
  Serious: Yes (Hospitalization)
  Sender: FDA-Public Use
  Company Number: JP-ASTRAZENECA-2010SE03411

PATIENT
  Age: 59 Year
  Sex: Male
  Weight: 51.4 kg

DRUGS (6)
  1. SEROQUEL [Suspect]
     Indication: BIPOLAR DISORDER
     Route: 048
     Dates: start: 20100113, end: 20100113
  2. SEROQUEL [Suspect]
     Route: 048
     Dates: start: 20100113, end: 20100119
  3. LOSIZOPILON [Suspect]
     Indication: BIPOLAR DISORDER
     Route: 048
     Dates: start: 20100103, end: 20100113
  4. LITHIUM CARBONATE [Concomitant]
     Indication: BIPOLAR DISORDER
     Route: 048
     Dates: start: 20100103
  5. HIRNAMIN [Concomitant]
     Indication: BIPOLAR DISORDER
     Route: 048
     Dates: start: 20100103, end: 20100115
  6. HIBERNA [Concomitant]
     Indication: BIPOLAR DISORDER
     Dates: start: 20100103, end: 20100115

REACTIONS (1)
  - NEUROLEPTIC MALIGNANT SYNDROME [None]
